FAERS Safety Report 10385377 (Version 2)
Quarter: 2014Q3

REPORT INFORMATION
  Report Type: Spontaneous
  Country: US (occurrence: None)
  Receive Date: 20140804
  Receipt Date: 20140903
  Transmission Date: 20150326
  Serious: Yes (Death)
  Sender: FDA-Public Use
  Company Number: 1713747-2013-99906

PATIENT
  Age: 65 Year
  Sex: Male
  Weight: 105.5 kg

DRUGS (16)
  1. PROVENTIL HFA [Concomitant]
     Active Substance: ALBUTEROL SULFATE
  2. ZOCOR [Concomitant]
     Active Substance: SIMVASTATIN
  3. CITALOPRAM [Concomitant]
     Active Substance: CITALOPRAM HYDROBROMIDE
  4. COREG [Concomitant]
     Active Substance: CARVEDILOL
  5. ZYLOPRIM [Concomitant]
     Active Substance: ALLOPURINOL
  6. FRESENIUS 2008K HEMODIALYSIS MACHINE [Concomitant]
     Active Substance: DEVICE
  7. 0.9% SODIUM CHLORIDE INJECTION, USP IN MINI-BAG PLUS CONTAINER [Suspect]
     Active Substance: SODIUM CHLORIDE
     Indication: HAEMODIALYSIS
     Dates: start: 20130507
  8. RENVELA [Concomitant]
     Active Substance: SEVELAMER CARBONATE
  9. METOLAZONE. [Concomitant]
     Active Substance: METOLAZONE
  10. DOXAZOSIN [Concomitant]
     Active Substance: DOXAZOSIN\DOXAZOSIN MESYLATE
  11. PROAIR AER [Concomitant]
  12. PRILOSEC [Concomitant]
     Active Substance: OMEPRAZOLE MAGNESIUM
  13. 0.9% SODIUM CHLORIDE INJECTION, USP IN MINI-BAG PLUS CONTAINER [Suspect]
     Active Substance: SODIUM CHLORIDE
     Indication: RENAL FAILURE CHRONIC
     Dates: start: 20130507
  14. SENSIPAR [Concomitant]
     Active Substance: CINACALCET HYDROCHLORIDE
  15. COUMADIN [Concomitant]
     Active Substance: WARFARIN SODIUM
  16. NORVASC [Concomitant]
     Active Substance: AMLODIPINE BESYLATE

REACTIONS (13)
  - Vomiting [None]
  - Bradycardia [None]
  - Cardio-respiratory arrest [None]
  - Back pain [None]
  - Atrial fibrillation [None]
  - Nausea [None]
  - Oropharyngeal pain [None]
  - Neck pain [None]
  - Headache [None]
  - Dyspnoea [None]
  - Pneumonia [None]
  - Unresponsive to stimuli [None]
  - Malaise [None]

NARRATIVE: CASE EVENT DATE: 20130507
